FAERS Safety Report 8911662 (Version 2)
Quarter: 2012Q4

REPORT INFORMATION
  Report Type: 
  Country: US (occurrence: US)
  Receive Date: 20121116
  Receipt Date: 20121207
  Transmission Date: 20130627
  Serious: Yes (Other)
  Sender: FDA-Public Use
  Company Number: US-PFIZER INC-2012287135

PATIENT
  Age: 58 Year
  Sex: Female
  Weight: 58.96 kg

DRUGS (7)
  1. LYRICA [Suspect]
     Indication: FIBROMYALGIA
     Dosage: 150 mg, 1x/day QHS
     Route: 048
  2. LISINOPRIL [Concomitant]
     Indication: HYPERTENSION
     Dosage: 10 mg, 1x/day
  3. LISINOPRIL [Concomitant]
     Dosage: 30 mg, UNK
  4. NAPROXEN [Concomitant]
     Indication: INFLAMMATION
     Dosage: half tablet of 500mg daily
     Route: 048
  5. ZOLPIDEM [Concomitant]
     Indication: SLEEP PROBLEM
     Dosage: half tablet of 10mg daily
     Route: 048
  6. AMBIEN [Concomitant]
     Indication: INSOMNIA
     Dosage: 10 mg, UNK
  7. OMEPRAZOLE [Concomitant]
     Indication: GERD
     Dosage: 20 mg, UNK

REACTIONS (2)
  - Fall [Unknown]
  - Foot fracture [Not Recovered/Not Resolved]
